FAERS Safety Report 7378129-8 (Version None)
Quarter: 2011Q1

REPORT INFORMATION
  Report Type: 
  Country: None (occurrence: None)
  Receive Date: 20110317
  Receipt Date: 20110308
  Transmission Date: 20110831
  Serious: Yes (Hospitalization)
  Sender: FDA-Public Use
  Company Number: UTC-005619

PATIENT
  Age: 47 Year
  Sex: Female
  Weight: 80.45 kg

DRUGS (4)
  1. TYVASO [Suspect]
     Dosage: 216 MCG (54 MCG, 4 IN 1 D), INHALATION
     Route: 055
     Dates: start: 20100805
  2. TRACLEER [Concomitant]
  3. DIURETICS (DURETICS) [Concomitant]
  4. COUMADIN [Concomitant]

REACTIONS (9)
  - CHEST DISCOMFORT [None]
  - CHEST PAIN [None]
  - VOMITING [None]
  - THROAT IRRITATION [None]
  - DRUG INEFFECTIVE [None]
  - HEADACHE [None]
  - NAUSEA [None]
  - OEDEMA [None]
  - DYSPNOEA [None]
